FAERS Safety Report 12997858 (Version 3)
Quarter: 2023Q1

REPORT INFORMATION
  Report Type: Spontaneous
  Country: US (occurrence: US)
  Receive Date: 20161205
  Receipt Date: 20230329
  Transmission Date: 20230418
  Serious: Yes (Other)
  Sender: FDA-Public Use
  Company Number: US-PFIZER INC-2016547961

PATIENT
  Age: 28 Year
  Sex: Male

DRUGS (1)
  1. XYNTHA [Suspect]
     Active Substance: ANTIHEMOPHILIC FACTOR, HUMAN RECOMBINANT RESIDUES 743-1636 DELETED
     Indication: Factor VIII deficiency
     Dosage: 24000 IU, MONTHLY (2000 IU ON MON WED FRI, MONTHLY DOSAGE: 24,000IU)
     Dates: start: 2000

REACTIONS (1)
  - Haemophilic arthropathy [Unknown]
